FAERS Safety Report 22636646 (Version 1)
Quarter: 2023Q2

REPORT INFORMATION
  Report Type: Spontaneous
  Country: AU (occurrence: AU)
  Receive Date: 20230623
  Receipt Date: 20230623
  Transmission Date: 20230722
  Serious: Yes (Hospitalization, Other)
  Sender: FDA-Public Use
  Company Number: AU-TASMAN PHARMA, INC.-2023TSM00113

PATIENT
  Sex: Male

DRUGS (62)
  1. CLOZAPINE [Suspect]
     Active Substance: CLOZAPINE
     Dosage: 500 MG
     Dates: start: 20100903, end: 20100915
  2. CLOZAPINE [Suspect]
     Active Substance: CLOZAPINE
     Dosage: 400 MG
     Dates: start: 20150916, end: 20151207
  3. CLOZAPINE [Suspect]
     Active Substance: CLOZAPINE
     Dosage: 400 MG
     Dates: start: 20160106, end: 20160301
  4. CLOZAPINE [Suspect]
     Active Substance: CLOZAPINE
     Dosage: 450 MG
     Dates: start: 20160720, end: 20160816
  5. CLOZAPINE [Suspect]
     Active Substance: CLOZAPINE
     Dosage: 300 MG
     Dates: start: 20160817, end: 20160828
  6. CLOZAPINE [Suspect]
     Active Substance: CLOZAPINE
     Dosage: 500 MG
     Dates: start: 20230512, end: 20230515
  7. CLOZAPINE [Suspect]
     Active Substance: CLOZAPINE
     Dosage: 500 MG
     Dates: start: 20230522, end: 20230528
  8. CLOZAPINE [Suspect]
     Active Substance: CLOZAPINE
     Dosage: 525 MG
     Dates: start: 20100916, end: 20100922
  9. CLOZAPINE [Suspect]
     Active Substance: CLOZAPINE
     Dosage: 550 MG
     Dates: start: 20100923, end: 20100929
  10. CLOZAPINE [Suspect]
     Active Substance: CLOZAPINE
     Dosage: 600 MG
     Dates: start: 20100930, end: 20101012
  11. CLOZAPINE [Suspect]
     Active Substance: CLOZAPINE
     Dosage: 650 MG
     Dates: start: 20101013, end: 20101115
  12. CLOZAPINE [Suspect]
     Active Substance: CLOZAPINE
     Dosage: 650 MG
     Dates: start: 20101124, end: 20110803
  13. CLOZAPINE [Suspect]
     Active Substance: CLOZAPINE
     Dosage: 600 MG
     Dates: start: 20110804, end: 20110829
  14. CLOZAPINE [Suspect]
     Active Substance: CLOZAPINE
     Dosage: 650 MG
     Dates: start: 20111026, end: 20120523
  15. CLOZAPINE [Suspect]
     Active Substance: CLOZAPINE
     Dosage: 600 MG
     Dates: start: 20120524, end: 20120718
  16. CLOZAPINE [Suspect]
     Active Substance: CLOZAPINE
     Dosage: 500 MG
     Dates: start: 20120719, end: 20121009
  17. CLOZAPINE [Suspect]
     Active Substance: CLOZAPINE
     Dosage: 400 MG
     Dates: start: 20130131, end: 20130313
  18. CLOZAPINE [Suspect]
     Active Substance: CLOZAPINE
     Dosage: 400 MG
     Dates: start: 20130411, end: 20131118
  19. CLOZAPINE [Suspect]
     Active Substance: CLOZAPINE
     Dosage: 400 MG
     Dates: start: 20131217, end: 20150107
  20. CLOZAPINE [Suspect]
     Active Substance: CLOZAPINE
     Dosage: 400 MG
     Dates: start: 20150205, end: 20150915
  21. CLOZAPINE [Suspect]
     Active Substance: CLOZAPINE
     Dosage: 400 MG
     Dates: start: 20160302, end: 20160524
  22. CLOZAPINE [Suspect]
     Active Substance: CLOZAPINE
     Dosage: 400 MG
     Dates: start: 20160622, end: 20160719
  23. CLOZAPINE [Suspect]
     Active Substance: CLOZAPINE
     Dosage: 300 MG
     Dates: start: 20160829, end: 20160904
  24. CLOZAPINE [Suspect]
     Active Substance: CLOZAPINE
     Dosage: 350 MG
     Dates: start: 20160905, end: 20161006
  25. CLOZAPINE [Suspect]
     Active Substance: CLOZAPINE
     Dosage: 50 MG
     Dates: start: 20161007, end: 20161101
  26. CLOZAPINE [Suspect]
     Active Substance: CLOZAPINE
     Dosage: 550 MG
     Dates: start: 20161123, end: 20170212
  27. CLOZAPINE [Suspect]
     Active Substance: CLOZAPINE
     Dosage: 550 MG
     Dates: start: 20170309, end: 20170909
  28. CLOZAPINE [Suspect]
     Active Substance: CLOZAPINE
     Dosage: 550 MG
     Dates: start: 20170911, end: 20171211
  29. CLOZAPINE [Suspect]
     Active Substance: CLOZAPINE
     Dosage: 500 MG
     Dates: start: 20171212, end: 20180205
  30. CLOZAPINE [Suspect]
     Active Substance: CLOZAPINE
     Dosage: 500 MG
     Dates: start: 20180306, end: 20180404
  31. CLOZAPINE [Suspect]
     Active Substance: CLOZAPINE
     Dosage: 550 MG
     Dates: start: 20180607, end: 20190918
  32. CLOZAPINE [Suspect]
     Active Substance: CLOZAPINE
     Dosage: 450 MG
     Dates: start: 20190919, end: 20191021
  33. CLOZAPINE [Suspect]
     Active Substance: CLOZAPINE
     Dosage: 550 MG
     Dates: start: 20191022, end: 20201209
  34. CLOZAPINE [Suspect]
     Active Substance: CLOZAPINE
     Dosage: 500 MG
     Dates: start: 20201210, end: 20211110
  35. CLOZAPINE [Suspect]
     Active Substance: CLOZAPINE
     Dosage: 500 MG
     Dates: start: 20220108, end: 20220303
  36. CLOZAPINE [Suspect]
     Active Substance: CLOZAPINE
     Dosage: 650 MG
     Dates: start: 20101116, end: 20101123
  37. CLOZAPINE [Suspect]
     Active Substance: CLOZAPINE
     Dosage: 650 MG
     Dates: start: 20110830, end: 20111025
  38. CLOZAPINE [Suspect]
     Active Substance: CLOZAPINE
     Dosage: 500 MG
     Dates: start: 20121010, end: 20121231
  39. CLOZAPINE [Suspect]
     Active Substance: CLOZAPINE
     Dosage: UNK
     Dates: start: 20130104, end: 20130130
  40. CLOZAPINE [Suspect]
     Active Substance: CLOZAPINE
     Dosage: 400 MG
     Dates: start: 20130314, end: 20130410
  41. CLOZAPINE [Suspect]
     Active Substance: CLOZAPINE
     Dosage: 400 MG
     Dates: start: 20131119, end: 20131216
  42. CLOZAPINE [Suspect]
     Active Substance: CLOZAPINE
     Dosage: 400 MG
     Dates: start: 20150108, end: 20150204
  43. CLOZAPINE [Suspect]
     Active Substance: CLOZAPINE
     Dosage: 400 MG
     Dates: start: 20151208, end: 20160105
  44. CLOZAPINE [Suspect]
     Active Substance: CLOZAPINE
     Dosage: 400 MG
     Dates: start: 20160525, end: 20160621
  45. CLOZAPINE [Suspect]
     Active Substance: CLOZAPINE
     Dosage: 550 MG
     Dates: start: 20161102, end: 20161122
  46. CLOZAPINE [Suspect]
     Active Substance: CLOZAPINE
     Dosage: 550 MG
     Dates: start: 20170213, end: 20170308
  47. CLOZAPINE [Suspect]
     Active Substance: CLOZAPINE
     Dosage: 500 MG
     Dates: start: 20180206, end: 20180305
  48. CLOZAPINE [Suspect]
     Active Substance: CLOZAPINE
     Dosage: 500 MG
     Dates: start: 20180405, end: 20180503
  49. CLOZAPINE [Suspect]
     Active Substance: CLOZAPINE
     Dosage: 550 MG
     Dates: start: 20180504, end: 20180606
  50. CLOZAPINE [Suspect]
     Active Substance: CLOZAPINE
     Dosage: 500 MG
     Dates: start: 20211111, end: 20220107
  51. CLOZAPINE [Suspect]
     Active Substance: CLOZAPINE
     Dosage: 500 MG
     Dates: start: 20220304, end: 20220330
  52. CLOZAPINE [Suspect]
     Active Substance: CLOZAPINE
     Dosage: UNK
     Dates: start: 20230325, end: 20230402
  53. CLOZAPINE [Suspect]
     Active Substance: CLOZAPINE
     Dosage: 500 MG
     Dates: start: 20220331, end: 20230222
  54. CLOZAPINE [Suspect]
     Active Substance: CLOZAPINE
     Dosage: 100 MG
     Dates: start: 20230403, end: 20230404
  55. CLOZAPINE [Suspect]
     Active Substance: CLOZAPINE
     Dosage: 150 MG
     Dates: start: 20230405, end: 20230412
  56. CLOZAPINE [Suspect]
     Active Substance: CLOZAPINE
     Dosage: 400 MG
     Dates: start: 20230413, end: 20230413
  57. CLOZAPINE [Suspect]
     Active Substance: CLOZAPINE
     Dosage: 450 MG
     Dates: start: 20230414, end: 20230416
  58. CLOZAPINE [Suspect]
     Active Substance: CLOZAPINE
     Dosage: 500 MG
     Dates: start: 20230417, end: 20230423
  59. CLOZAPINE [Suspect]
     Active Substance: CLOZAPINE
     Dosage: 600 MG
     Dates: start: 20230424, end: 20230504
  60. CLOZAPINE [Suspect]
     Active Substance: CLOZAPINE
     Dosage: 500 MG
     Dates: start: 20230505, end: 20230511
  61. CLOZAPINE [Suspect]
     Active Substance: CLOZAPINE
     Dosage: 500 MG
     Dates: start: 20230529
  62. VERSACLOZ [Suspect]
     Active Substance: CLOZAPINE
     Dosage: 500 MG
     Dates: start: 20230516, end: 20230521

REACTIONS (5)
  - Hospitalisation [Unknown]
  - Neutropenia [Not Recovered/Not Resolved]
  - Treatment noncompliance [Recovered/Resolved]
  - White blood cell count decreased [Not Recovered/Not Resolved]
  - Unevaluable event [Unknown]

NARRATIVE: CASE EVENT DATE: 20121231
